FAERS Safety Report 8042759-0 (Version None)
Quarter: 2011Q4

REPORT INFORMATION
  Report Type: 
  Country: None (occurrence: None)
  Receive Date: 20111209
  Receipt Date: 20111128
  Transmission Date: 20120403
  Serious: Yes (Other)
  Sender: FDA-Public Use
  Company Number: ALL1-2011-02234

PATIENT
  Age: 24 Year
  Sex: Female
  Weight: 53.5 kg

DRUGS (2)
  1. ADDERALL XR 10 [Suspect]
     Indication: ATTENTION DEFICIT/HYPERACTIVITY DISORDER
     Dosage: 20 MG, 1X/DAY: QD, ORAL, 40 MG (TWO 20 MG CAPSULES), 1X/DAY: QD, ORAL, ORAL
     Route: 048
     Dates: start: 20090101, end: 20110101
  2. ADDERALL XR 10 [Suspect]
     Indication: ATTENTION DEFICIT/HYPERACTIVITY DISORDER
     Dosage: 20 MG, 1X/DAY: QD, ORAL, 40 MG (TWO 20 MG CAPSULES), 1X/DAY: QD, ORAL, ORAL
     Route: 048
     Dates: start: 20110101

REACTIONS (4)
  - OVERDOSE [None]
  - MAJOR DEPRESSION [None]
  - IRRITABLE BOWEL SYNDROME [None]
  - THERAPEUTIC RESPONSE UNEXPECTED [None]
